FAERS Safety Report 9431822 (Version 2)
Quarter: 2013Q3

REPORT INFORMATION
  Report Type: Spontaneous
  Country: GB (occurrence: GB)
  Receive Date: 20130731
  Receipt Date: 20130801
  Transmission Date: 20140515
  Serious: Yes (Hospitalization)
  Sender: FDA-Public Use
  Company Number: PHFR2013GB004256

PATIENT
  Age: 33 Year
  Sex: Female

DRUGS (3)
  1. CLOZARIL [Suspect]
     Indication: SCHIZOPHRENIA
     Dosage: UNK
     Route: 048
     Dates: start: 20130121, end: 20130719
  2. EPILIM [Suspect]
     Dosage: UNK UKN, UNK
  3. EPILIM [Suspect]
     Dosage: 12000 MG, UNK

REACTIONS (1)
  - Overdose [Recovered/Resolved]
